FAERS Safety Report 8372561-1 (Version None)
Quarter: 2012Q2

REPORT INFORMATION
  Report Type: 
  Country: None (occurrence: None)
  Receive Date: 20120521
  Receipt Date: 20120515
  Transmission Date: 20120825
  Serious: Yes (Hospitalization)
  Sender: FDA-Public Use
  Company Number: PHHY2012AE005532

PATIENT
  Age: 44 Year
  Sex: Male
  Weight: 66 kg

DRUGS (2)
  1. AMLODIPINE/VALSARTAN [Suspect]
     Dosage: 1 DF (160 MG VALSAR AND 5 MG AMLO), QD
     Route: 048
     Dates: start: 20101022, end: 20110305
  2. ANTIHYPERTENSIVES [Concomitant]

REACTIONS (4)
  - ABDOMINAL PAIN UPPER [None]
  - NAUSEA [None]
  - VOMITING [None]
  - MYOCARDIAL INFARCTION [None]
